FAERS Safety Report 23116327 (Version 18)
Quarter: 2025Q2

REPORT INFORMATION
  Report Type: Spontaneous
  Country: US (occurrence: US)
  Receive Date: 20231027
  Receipt Date: 20250421
  Transmission Date: 20250717
  Serious: Yes (Hospitalization, Other)
  Sender: PFIZER
  Company Number: US-PFIZER INC-202300348027

PATIENT
  Age: 70 Year
  Sex: Female
  Weight: 104.31 kg

DRUGS (5)
  1. CIBINQO [Suspect]
     Active Substance: ABROCITINIB
     Indication: Eczema
     Dosage: 100 MG, 1X/DAY
     Dates: start: 20230608
  2. CIBINQO [Suspect]
     Active Substance: ABROCITINIB
     Indication: Pemphigoid
     Dosage: 50 MG, 1X/DAY
     Dates: start: 20231207
  3. CIBINQO [Suspect]
     Active Substance: ABROCITINIB
     Dosage: 200 MG, 1X/DAY
     Dates: start: 20240508
  4. CIBINQO [Suspect]
     Active Substance: ABROCITINIB
     Dosage: 100 MG, 1X/DAY
     Dates: start: 20240806
  5. CIBINQO [Suspect]
     Active Substance: ABROCITINIB
     Dosage: TAKE 1 TABLET (100MG) BY MOUTH 2 TIMES DAILY
     Route: 048

REACTIONS (12)
  - Cellulitis [Recovered/Resolved]
  - Condition aggravated [Not Recovered/Not Resolved]
  - Skin haemorrhage [Unknown]
  - Sunburn [Recovering/Resolving]
  - Scratch [Recovering/Resolving]
  - Skin infection [Not Recovered/Not Resolved]
  - Staphylococcal infection [Not Recovered/Not Resolved]
  - Blister [Unknown]
  - Urinary tract infection [Recovering/Resolving]
  - Off label use [Unknown]
  - Intentional dose omission [Unknown]
  - Wrong technique in product usage process [Unknown]

NARRATIVE: CASE EVENT DATE: 20231001
